FAERS Safety Report 21165668 (Version 1)
Quarter: 2022Q3

REPORT INFORMATION
  Report Type: Spontaneous
  Country: US (occurrence: None)
  Receive Date: 20220802
  Receipt Date: 20220802
  Transmission Date: 20221027
  Serious: Yes (Other)
  Sender: FDA-Public Use
  Company Number: None

PATIENT
  Age: 72 Year
  Sex: Male
  Weight: 61.2 kg

DRUGS (5)
  1. LENALIDOMIDE [Suspect]
     Active Substance: LENALIDOMIDE
     Indication: Follicular lymphoma
     Dosage: FREQUENCY : DAILY;?
     Route: 048
     Dates: start: 20220706, end: 20220801
  2. Advil 200mg [Concomitant]
  3. Omega 3-6-9 1200mg [Concomitant]
  4. PREDNISONE [Concomitant]
     Active Substance: PREDNISONE
  5. VITAMINS [Concomitant]
     Active Substance: VITAMINS

REACTIONS (1)
  - Rash [None]

NARRATIVE: CASE EVENT DATE: 20220801
